FAERS Safety Report 6738420-2 (Version None)
Quarter: 2010Q2

REPORT INFORMATION
  Report Type: 
  Country: None (occurrence: None)
  Receive Date: 20100520
  Receipt Date: 20100505
  Transmission Date: 20101027
  Serious: Yes (Other)
  Sender: FDA-Public Use
  Company Number: AUR-APL-2010-01298

PATIENT
  Sex: Female

DRUGS (1)
  1. SIMVASTATIN [Suspect]
     Dosage: 20MG,

REACTIONS (5)
  - ARTERIAL INJURY [None]
  - BALANCE DISORDER [None]
  - DIZZINESS [None]
  - EXTRASYSTOLES [None]
  - MIGRAINE [None]
